FAERS Safety Report 8604806 (Version 2)
Quarter: 2012Q4

REPORT INFORMATION
  Report Type: 
  Country: FR (occurrence: FR)
  Receive Date: 20120608
  Receipt Date: 20121108
  Transmission Date: 20130627
  Serious: Yes (Death, Hospitalization)
  Sender: FDA-Public Use
  Company Number: FR-PFIZER INC-2012134362

PATIENT
  Age: 90 Year
  Sex: Female

DRUGS (6)
  1. AMLOR [Suspect]
     Dosage: 5 mg, 1x/day
     Route: 048
  2. NICERGOLINE [Suspect]
     Dosage: 10 mg, daily
     Route: 048
     Dates: end: 20120511
  3. LANSOPRAZOLE [Suspect]
     Dosage: 15 mg, 1x/day
     Route: 048
  4. KARDEGIC [Suspect]
     Dosage: 160 mg, 1x/day
     Route: 048
  5. COTAREG [Suspect]
     Dosage: 25mg+160mg
     Route: 048
  6. HEXAQUINE [Concomitant]

REACTIONS (3)
  - Pulmonary fibrosis [Fatal]
  - Pneumonia aspiration [Unknown]
  - Respiratory distress [Unknown]
